FAERS Safety Report 7062084-4 (Version None)
Quarter: 2010Q4

REPORT INFORMATION
  Report Type: 
  Country: None (occurrence: None)
  Receive Date: 20101026
  Receipt Date: 20101012
  Transmission Date: 20110411
  Serious: Yes (Other)
  Sender: FDA-Public Use
  Company Number: PHHY2010AU65514

PATIENT
  Sex: Female

DRUGS (2)
  1. EXFORGE [Suspect]
     Indication: HYPERTENSION
     Dosage: 160/5 MG; HALF TABLET PER DAY
     Route: 048
     Dates: start: 20100923, end: 20100927
  2. OTOXIN [Concomitant]
     Dosage: UNK

REACTIONS (3)
  - EMOTIONAL DISTRESS [None]
  - FEELING ABNORMAL [None]
  - LACRIMATION INCREASED [None]
